FAERS Safety Report 23896580 (Version 2)
Quarter: 2024Q2

REPORT INFORMATION
  Report Type: Other
  Country: PK (occurrence: None)
  Receive Date: 20240524
  Receipt Date: 20240528
  Transmission Date: 20240715
  Serious: Yes (Other)
  Sender: FDA-Public Use
  Company Number: PK-ROCHE-3564130

PATIENT
  Age: 44 Year
  Sex: Female
  Weight: 57.2 kg

DRUGS (1)
  1. AVASTIN [Suspect]
     Active Substance: BEVACIZUMAB
     Indication: Ovarian cancer
     Route: 042
     Dates: start: 20240504

REACTIONS (7)
  - Cough [Unknown]
  - Abdominal distension [Unknown]
  - Malignant pleural effusion [Unknown]
  - Ascites [Unknown]
  - Uterine enlargement [Unknown]
  - Pleural effusion [Unknown]
  - Intercepted product prescribing error [Unknown]

NARRATIVE: CASE EVENT DATE: 20240504
